FAERS Safety Report 7151213-X (Version None)
Quarter: 2010Q4

REPORT INFORMATION
  Report Type: 
  Country: None (occurrence: None)
  Receive Date: 20101206
  Receipt Date: 20101206
  Transmission Date: 20110411
  Serious: Yes (Hospitalization)
  Sender: FDA-Public Use
  Company Number: None

PATIENT
  Age: 91 Year
  Sex: Male
  Weight: 75 kg

DRUGS (3)
  1. TRAZODONE HCL [Suspect]
     Indication: AGITATION
     Dosage: 25 MG HS PO
     Route: 048
     Dates: start: 20091224, end: 20091225
  2. TRAZODONE HCL [Suspect]
     Indication: INSOMNIA
     Dosage: 25 MG HS PO
     Route: 048
     Dates: start: 20091224, end: 20091225
  3. CIPROFLOXACIN IN DEXTROSE [Suspect]
     Indication: PNEUMONIA
     Dosage: 400 MG BID IV
     Route: 042
     Dates: start: 20091224, end: 20091225

REACTIONS (8)
  - AGITATION [None]
  - CATATONIA [None]
  - DELIRIUM [None]
  - HALLUCINATIONS, MIXED [None]
  - INSOMNIA [None]
  - MIOSIS [None]
  - URINARY RETENTION [None]
  - URINARY TRACT INFECTION [None]
